FAERS Safety Report 16634022 (Version 6)
Quarter: 2019Q3

REPORT INFORMATION
  Report Type: Report from Study
  Country: JP (occurrence: JP)
  Receive Date: 20190725
  Receipt Date: 20190906
  Transmission Date: 20191004
  Serious: Yes (Death, Hospitalization, Disabling)
  Sender: FDA-Public Use
  Company Number: JP-ASTRAZENECA-2019SF05864

PATIENT
  Age: 28438 Day
  Sex: Male
  Weight: 71 kg

DRUGS (1)
  1. IMFINZI [Suspect]
     Active Substance: DURVALUMAB
     Indication: NON-SMALL CELL LUNG CANCER
     Route: 041
     Dates: start: 20190619, end: 20190703

REACTIONS (6)
  - Cardiac failure acute [Recovering/Resolving]
  - Tachyarrhythmia [Fatal]
  - Pulmonary oedema [Recovering/Resolving]
  - Supraventricular tachycardia [Recovering/Resolving]
  - Cardiac failure [Fatal]
  - Radiation pneumonitis [Not Recovered/Not Resolved]

NARRATIVE: CASE EVENT DATE: 20190717
